FAERS Safety Report 5875014-5 (Version None)
Quarter: 2008Q3

REPORT INFORMATION
  Report Type: 
  Country: None (occurrence: None)
  Receive Date: 20080909
  Receipt Date: 20080901
  Transmission Date: 20090109
  Serious: Yes (Hospitalization, Other)
  Sender: FDA-Public Use
  Company Number: JP-ABBOTT-02P-087-0207240-00

PATIENT
  Sex: Male

DRUGS (11)
  1. KALETRA [Suspect]
     Indication: HIV INFECTION
     Route: 048
     Dates: start: 20010928, end: 20020909
  2. CLARITHROMYCIN [Suspect]
     Indication: MYCOBACTERIUM AVIUM COMPLEX INFECTION
     Route: 048
     Dates: start: 20020110, end: 20020909
  3. CLARITHROMYCIN [Suspect]
     Route: 048
     Dates: start: 20020911
  4. LAMIVUDINE [Suspect]
     Indication: HIV INFECTION
     Route: 048
     Dates: start: 20010928, end: 20020909
  5. LAMIVUDINE [Suspect]
     Route: 048
     Dates: start: 20020917
  6. STAVUDINE [Suspect]
     Indication: HIV INFECTION
     Route: 048
     Dates: start: 20010928, end: 20020513
  7. DIDANOSINE [Suspect]
     Indication: HIV INFECTION
     Route: 048
     Dates: start: 20020514, end: 20020909
  8. NELFINAVIR MESILATE [Suspect]
     Indication: HIV INFECTION
     Route: 048
     Dates: start: 20020917
  9. TENOFOVIR [Suspect]
     Indication: HIV INFECTION
     Route: 048
     Dates: start: 20020917
  10. DAPSONE [Concomitant]
     Indication: ANTIFUNGAL PROPHYLAXIS
     Route: 048
     Dates: start: 20020214, end: 20020909
  11. DAPSONE [Concomitant]
     Route: 048
     Dates: start: 20020911

REACTIONS (7)
  - ARRHYTHMIA [None]
  - ATYPICAL MYCOBACTERIAL INFECTION [None]
  - BRADYCARDIA [None]
  - DIARRHOEA [None]
  - DIZZINESS [None]
  - HYPOAESTHESIA [None]
  - X-RAY ABNORMAL [None]
